FAERS Safety Report 8586700 (Version 4)
Quarter: 2013Q2

REPORT INFORMATION
  Report Type: Report from Study
  Country: US (occurrence: US)
  Receive Date: 20120530
  Receipt Date: 20130507
  Transmission Date: 20140414
  Serious: Yes (Hospitalization, Other)
  Sender: FDA-Public Use
  Company Number: US-ACTELION-A-NJ2012-60191

PATIENT
  Age: 85 Year
  Sex: Female

DRUGS (2)
  1. TRACLEER [Suspect]
     Indication: PULMONARY ARTERIAL HYPERTENSION
     Dosage: UNK
     Route: 048
  2. NITROGLYCERIN [Concomitant]

REACTIONS (7)
  - Chronic obstructive pulmonary disease [Recovered/Resolved]
  - Urinary tract obstruction [Unknown]
  - Dyspnoea [Unknown]
  - Pneumonia [Unknown]
  - Bronchitis [Unknown]
  - Syncope [Unknown]
  - Asthma [Recovered/Resolved]
